FAERS Safety Report 6565034-X (Version None)
Quarter: 2010Q1

REPORT INFORMATION
  Report Type: 
  Country: None (occurrence: None)
  Receive Date: 20100201
  Receipt Date: 20100120
  Transmission Date: 20100710
  Serious: Yes (Other)
  Sender: FDA-Public Use
  Company Number: IL-BRISTOL-MYERS SQUIBB COMPANY-14954242

PATIENT
  Age: 67 Year
  Sex: Female

DRUGS (5)
  1. METFORMIN HCL [Suspect]
     Indication: TYPE 2 DIABETES MELLITUS
     Dosage: ALSO TAKEN FROM JUN1999 TO 07DEC09 AND AGAIN FROM 18DEC09- (10YEARS)
     Route: 048
     Dates: start: 20091207, end: 20091218
  2. METFORMIN HCL [Concomitant]
     Indication: TYPE 2 DIABETES MELLITUS
     Dates: start: 19990601, end: 20091207
  3. ASPIRIN [Concomitant]
     Route: 048
     Dates: start: 19990601
  4. NORMITEN [Concomitant]
     Route: 048
     Dates: start: 19990601
  5. LOSEC [Concomitant]
     Route: 048
     Dates: start: 19990601

REACTIONS (2)
  - FACE OEDEMA [None]
  - OEDEMA PERIPHERAL [None]
